FAERS Safety Report 5635500-X (Version None)
Quarter: 2008Q1

REPORT INFORMATION
  Report Type: 
  Country: None (occurrence: None)
  Receive Date: 20080222
  Receipt Date: 20080211
  Transmission Date: 20080703
  Serious: Yes (Other)
  Sender: FDA-Public Use
  Company Number: AU-PFIZER INC-2008014362

PATIENT
  Sex: Female

DRUGS (3)
  1. CHANTIX [Suspect]
  2. PANAMAX [Concomitant]
  3. MURELAX [Concomitant]

REACTIONS (5)
  - AGEUSIA [None]
  - COAGULOPATHY [None]
  - DEPRESSION [None]
  - DYSPEPSIA [None]
  - NAUSEA [None]
